FAERS Safety Report 10652913 (Version 1)
Quarter: 2014Q4

REPORT INFORMATION
  Report Type: Spontaneous
  Country: US (occurrence: US)
  Receive Date: 20141215
  Receipt Date: 20141215
  Transmission Date: 20150529
  Serious: No
  Sender: FDA-Public Use
  Company Number: US-GLAXOSMITHKLINE-US2014GSK035564

PATIENT
  Age: 61 Year
  Sex: Female

DRUGS (4)
  1. BLOOD PRESSURE MEDICATION [Concomitant]
     Active Substance: UNSPECIFIED INGREDIENT
  2. THEOPHYLLINE [Concomitant]
     Active Substance: THEOPHYLLINE ANHYDROUS
  3. VENTOLIN HFA [Suspect]
     Active Substance: ALBUTEROL SULFATE
     Indication: ASTHMA
     Dosage: 2 PUFF(S), PRN
     Dates: start: 2004
  4. CHOLESTEROL MEDICATION (UNKNOWN) [Concomitant]

REACTIONS (3)
  - Environmental exposure [Unknown]
  - Medication error [Unknown]
  - Inhalation therapy [Not Recovered/Not Resolved]
